FAERS Safety Report 20066220 (Version 19)
Quarter: 2023Q2

REPORT INFORMATION
  Report Type: Spontaneous
  Country: CA (occurrence: CA)
  Receive Date: 20211114
  Receipt Date: 20230424
  Transmission Date: 20230722
  Serious: Yes (Other)
  Sender: FDA-Public Use
  Company Number: CA-CELLTRION INC.-2021CA011609

PATIENT

DRUGS (33)
  1. INFLECTRA [Suspect]
     Active Substance: INFLIXIMAB-DYYB
     Indication: Crohn^s disease
     Dosage: 10 MG/KG, 0, 2, 6 WEEKS THEN EVERY 8 WEEKS
     Route: 042
     Dates: start: 20210731, end: 20220704
  2. INFLECTRA [Suspect]
     Active Substance: INFLIXIMAB-DYYB
     Dosage: 10 MG/KG, 0, 2, 6 WEEKS THEN EVERY 8 WEEKS
     Route: 042
     Dates: start: 20210731, end: 20210731
  3. INFLECTRA [Suspect]
     Active Substance: INFLIXIMAB-DYYB
     Dosage: 10 MG/KG, 0, 2, 6 WEEKS THEN EVERY 8 WEEKS
     Route: 042
     Dates: start: 20210813, end: 20210813
  4. INFLECTRA [Suspect]
     Active Substance: INFLIXIMAB-DYYB
     Dosage: 10 MG/KG, 0, 2, 6 WEEKS THEN EVERY 8 WEEKS
     Route: 042
     Dates: start: 20210907, end: 20210907
  5. INFLECTRA [Suspect]
     Active Substance: INFLIXIMAB-DYYB
     Dosage: 10 MG/KG, 0, 2, 6 WEEKS THEN EVERY 8 WEEKS
     Route: 042
     Dates: start: 20211104, end: 20211104
  6. INFLECTRA [Suspect]
     Active Substance: INFLIXIMAB-DYYB
     Dosage: 10 MG/KG, 0, 2, 6 WEEKS THEN EVERY 8 WEEKS
     Route: 042
     Dates: start: 20211230, end: 20211230
  7. INFLECTRA [Suspect]
     Active Substance: INFLIXIMAB-DYYB
     Dosage: 10 MG/KG, 0, 2, 6 WEEKS THEN EVERY 8 WEEKS
     Route: 042
     Dates: start: 20220221, end: 20220221
  8. INFLECTRA [Suspect]
     Active Substance: INFLIXIMAB-DYYB
     Dosage: 10 MG/KG, 0, 2, 6 WEEKS THEN EVERY 8 WEEKS
     Route: 042
     Dates: start: 20220509, end: 20220509
  9. INFLECTRA [Suspect]
     Active Substance: INFLIXIMAB-DYYB
     Dosage: 10 MG/KG, 0, 2, 6 WEEKS THEN EVERY 8 WEEKS
     Route: 042
     Dates: start: 20220704, end: 20220704
  10. INFLECTRA [Suspect]
     Active Substance: INFLIXIMAB-DYYB
     Dosage: 10 MG/KG, EVERY 6 WEEKS
     Route: 042
     Dates: start: 20220812, end: 20220812
  11. INFLECTRA [Suspect]
     Active Substance: INFLIXIMAB-DYYB
     Dosage: 10 MG/KG, EVERY 6 WEEKS
     Route: 042
     Dates: start: 20220812
  12. INFLECTRA [Suspect]
     Active Substance: INFLIXIMAB-DYYB
     Dosage: 10 MG/KG, EVERY 6 WEEKS
     Route: 042
     Dates: start: 20220812
  13. INFLECTRA [Suspect]
     Active Substance: INFLIXIMAB-DYYB
     Dosage: 10 MG/KG, EVERY 6 WEEKS
     Route: 042
     Dates: start: 20220812
  14. INFLECTRA [Suspect]
     Active Substance: INFLIXIMAB-DYYB
     Dosage: 500 MG, (SUPPOSED TO RECEIVE 10 MG/KG), EVERY 6 WEEKS
     Route: 042
     Dates: start: 20220923
  15. INFLECTRA [Suspect]
     Active Substance: INFLIXIMAB-DYYB
     Dosage: 10 MG/KG, EVERY 6 WEEKS
     Route: 042
     Dates: start: 20221102
  16. INFLECTRA [Suspect]
     Active Substance: INFLIXIMAB-DYYB
     Dosage: 480 MG (10 MG/KG) AFTER 12WEEKS, PRESCRIBED EVERY 6 WEEKS
     Route: 042
     Dates: start: 20230125
  17. INFLECTRA [Suspect]
     Active Substance: INFLIXIMAB-DYYB
     Dosage: 480 MG (10 MG/KG) AFTER 12WEEKS, PRESCRIBED EVERY 6 WEEKS
     Route: 042
     Dates: start: 20230125
  18. INFLECTRA [Suspect]
     Active Substance: INFLIXIMAB-DYYB
     Dosage: 480 MG (10 MG/KG) AFTER 12WEEKS, PRESCRIBED EVERY 6 WEEKS
     Route: 042
     Dates: start: 20230125
  19. INFLECTRA [Suspect]
     Active Substance: INFLIXIMAB-DYYB
     Dosage: 500 MG, EVERY 6 WEEKS
     Route: 042
     Dates: start: 20230308
  20. ATORVASTATIN [Concomitant]
     Active Substance: ATORVASTATIN
     Dosage: 1 DF, DOSAGE NOT AVAILABLE
     Route: 065
  21. BISOPROLOL [Concomitant]
     Active Substance: BISOPROLOL
     Dosage: 1 DF, DOSAGE NOT AVAILABLE
     Route: 065
  22. CALCIUM [Concomitant]
     Active Substance: CALCIUM
     Dosage: 1 DF, DOSAGE NOT AVAILABLE
     Route: 065
  23. IRON [Concomitant]
     Active Substance: IRON
     Dosage: 1 DF, DOSAGE NOT AVAILABLE
     Route: 065
  24. LOPERAMIDE [Concomitant]
     Active Substance: LOPERAMIDE
     Dosage: 1 DF, DOSAGE NOT AVAILABLE
     Route: 065
  25. PENTASA [Concomitant]
     Active Substance: MESALAMINE
     Dosage: 1 DF, DOSAGE NOT AVAILABLE
     Route: 065
  26. PREDNISONE [Concomitant]
     Active Substance: PREDNISONE
     Dosage: 40 MG (DECREASING DOSE)
     Route: 065
  27. PANTOPRAZOLE SODIUM [Concomitant]
     Active Substance: PANTOPRAZOLE SODIUM
     Dosage: 1 DF, DOSAGE NOT AVAILABLE
     Route: 065
  28. RESTORIL [Concomitant]
     Active Substance: TEMAZEPAM
     Dosage: 1 DF, DOSAGE NOT AVAILABLE
     Route: 065
  29. SODIUM PHOSPHATE [Concomitant]
     Active Substance: SODIUM PHOSPHATE
     Dosage: 1 DF, DOSAGE NOT AVAILABLE
     Route: 065
  30. SYNTHROID [Concomitant]
     Active Substance: LEVOTHYROXINE SODIUM
     Dosage: 1 DF, DOSAGE NOT AVAILABLE
     Route: 065
  31. VITAMIN B12 [Concomitant]
     Active Substance: CYANOCOBALAMIN
     Dosage: 1 DF, DOSAGE NOT AVAILABLE
     Route: 065
  32. CHOLECALCIFEROL [Concomitant]
     Active Substance: CHOLECALCIFEROL
     Dosage: 1 DF, DOSAGE NOT AVAILABLE
     Route: 065
  33. XARELTO [Concomitant]
     Active Substance: RIVAROXABAN
     Dosage: 1 DF, DOSAGE NOT AVAILABLE
     Route: 065

REACTIONS (17)
  - Renal failure [Not Recovered/Not Resolved]
  - Weight decreased [Unknown]
  - Off label use [Unknown]
  - Incorrect dose administered by product [Unknown]
  - Inappropriate schedule of product administration [Unknown]
  - Arthralgia [Not Recovered/Not Resolved]
  - Body temperature fluctuation [Unknown]
  - Blood pressure fluctuation [Unknown]
  - Condition aggravated [Not Recovered/Not Resolved]
  - Decreased appetite [Unknown]
  - Dehydration [Unknown]
  - Poor venous access [Unknown]
  - Skin disorder [Unknown]
  - Vein disorder [Unknown]
  - Weight fluctuation [Unknown]
  - Diarrhoea [Not Recovered/Not Resolved]
  - C-reactive protein increased [Not Recovered/Not Resolved]

NARRATIVE: CASE EVENT DATE: 20210101
